FAERS Safety Report 20641367 (Version 1)
Quarter: 2022Q1

REPORT INFORMATION
  Report Type: Spontaneous
  Country: CH (occurrence: CH)
  Receive Date: 20220328
  Receipt Date: 20220328
  Transmission Date: 20220423
  Serious: Yes (Hospitalization, Other)
  Sender: FDA-Public Use
  Company Number: CH-RISINGPHARMA-CH-2022RISLIT00282

PATIENT
  Age: 30 Year
  Sex: Female

DRUGS (21)
  1. LEVOFLOXACIN [Suspect]
     Active Substance: LEVOFLOXACIN
     Indication: Tuberculosis
     Route: 065
  2. LEVOFLOXACIN [Suspect]
     Active Substance: LEVOFLOXACIN
     Route: 065
  3. LEVOFLOXACIN [Suspect]
     Active Substance: LEVOFLOXACIN
     Route: 065
  4. LINEZOLID [Suspect]
     Active Substance: LINEZOLID
     Indication: Tuberculosis
     Route: 065
  5. AMIKACIN [Suspect]
     Active Substance: AMIKACIN
     Indication: Tuberculosis
     Route: 065
  6. ETHAMBUTOL [Suspect]
     Active Substance: ETHAMBUTOL HYDROCHLORIDE
     Indication: Tuberculosis
     Route: 065
  7. ETHAMBUTOL [Suspect]
     Active Substance: ETHAMBUTOL HYDROCHLORIDE
     Route: 065
  8. ISONIAZID [Suspect]
     Active Substance: ISONIAZID
     Indication: Tuberculosis
     Route: 065
  9. TERIZIDONE [Suspect]
     Active Substance: TERIZIDONE
     Indication: Tuberculosis
     Route: 065
  10. PYRIDOXINE [Suspect]
     Active Substance: PYRIDOXINE
     Indication: Vitamin supplementation
     Route: 065
  11. RIFAMPIN [Concomitant]
     Active Substance: RIFAMPIN
     Indication: Tuberculosis
     Route: 065
  12. MOXIFLOXACIN [Concomitant]
     Active Substance: MOXIFLOXACIN
     Indication: Tuberculosis
     Route: 065
  13. PROTIONAMIDE [Concomitant]
     Active Substance: PROTIONAMIDE
     Indication: Tuberculosis
     Route: 065
  14. PREDNISOLONE [Concomitant]
     Active Substance: PREDNISOLONE
     Indication: Rash
  15. PREDNISOLONE [Concomitant]
     Active Substance: PREDNISOLONE
     Indication: Pseudomembranous colitis
  16. DIMETHINDENE [Concomitant]
     Active Substance: DIMETHINDENE
     Indication: Rash
     Route: 065
  17. MESALAMINE [Concomitant]
     Active Substance: MESALAMINE
     Indication: Rash
     Route: 065
  18. MESALAMINE [Concomitant]
     Active Substance: MESALAMINE
     Indication: Pseudomembranous colitis
  19. AMOXICILLIN/CLAVULANIC ACID [AMOXICILLIN SODIUM;CLAVULANATE POTASSIUM] [Concomitant]
     Route: 065
  20. FLUCONAZOLE [Concomitant]
     Active Substance: FLUCONAZOLE
  21. NYSTATIN [Concomitant]
     Active Substance: NYSTATIN

REACTIONS (4)
  - Neuropathy peripheral [Not Recovered/Not Resolved]
  - Myopathy [Not Recovered/Not Resolved]
  - Paradoxical drug reaction [Not Recovered/Not Resolved]
  - Diarrhoea haemorrhagic [Unknown]
